FAERS Safety Report 10301294 (Version 1)
Quarter: 2014Q1

REPORT INFORMATION
  Report Type: Spontaneous
  Country: US (occurrence: None)
  Receive Date: 20140106
  Receipt Date: 20140106
  Transmission Date: 20141002
  Serious: No
  Sender: FDA-Public Use
  Company Number: 2013-00149M

PATIENT
  Age: 65 Year
  Sex: Male

DRUGS (3)
  1. ZICAM COLD REMEDY LIQUI-LOZ [Suspect]
     Indication: NASOPHARYNGITIS
     Dosage: 4 LOZENGES ORALLY DAILY
     Route: 048
     Dates: start: 20131116, end: 20131122
  2. UNKNOWN ANTIHYPERTENSIVES [Concomitant]
  3. UNKNOWN CHOLESTEROL MEDICATION [Concomitant]

REACTIONS (2)
  - Ageusia [None]
  - Anosmia [None]
